FAERS Safety Report 12329414 (Version 1)
Quarter: 2016Q2

REPORT INFORMATION
  Report Type: Spontaneous
  Country: US (occurrence: US)
  Receive Date: 20160503
  Receipt Date: 20160503
  Transmission Date: 20160815
  Serious: Yes (Hospitalization, Disabling, Other)
  Sender: FDA-Public Use
  Company Number: US-VIIV HEALTHCARE LIMITED-US2016GSK059320

PATIENT
  Age: 50 Year
  Sex: Male

DRUGS (6)
  1. EPIVIR [Concomitant]
     Active Substance: LAMIVUDINE
     Indication: HIV INFECTION
  2. KEFLEX [Suspect]
     Active Substance: CEPHALEXIN
  3. LAMIVUDINE. [Suspect]
     Active Substance: LAMIVUDINE
  4. ASPIRIN. [Suspect]
     Active Substance: ASPIRIN
  5. LEVAQUIN [Suspect]
     Active Substance: LEVOFLOXACIN
  6. BACTRIM [Suspect]
     Active Substance: SULFAMETHOXAZOLE\TRIMETHOPRIM

REACTIONS (4)
  - Pruritus [Unknown]
  - Urticaria [Unknown]
  - Haemorrhagic stroke [Unknown]
  - Drug hypersensitivity [Unknown]

NARRATIVE: CASE EVENT DATE: 200112
